FAERS Safety Report 26129391 (Version 1)
Quarter: 2025Q4

REPORT INFORMATION
  Report Type: Spontaneous
  Country: US (occurrence: US)
  Receive Date: 20251208
  Receipt Date: 20251208
  Transmission Date: 20260118
  Serious: No
  Sender: TEVA
  Company Number: US-ABBVIE-6559108

PATIENT
  Sex: Female

DRUGS (1)
  1. OXYTROL [Suspect]
     Active Substance: OXYBUTYNIN
     Indication: Product used for unknown indication
     Route: 062

REACTIONS (3)
  - Erythema [Unknown]
  - Pruritus [Unknown]
  - Product adhesion issue [Unknown]
